FAERS Safety Report 10435049 (Version 1)
Quarter: 2014Q2

REPORT INFORMATION
  Report Type: Spontaneous
  Country: US (occurrence: None)
  Receive Date: 20140618
  Receipt Date: 20140618
  Transmission Date: 20141212
  Serious: Yes (Other)
  Sender: FDA-Public Use
  Company Number: 091682U

PATIENT
  Sex: Male

DRUGS (1)
  1. LACOSAMIDE [Suspect]
     Indication: GENERALISED TONIC-CLONIC SEIZURE
     Dates: start: 2013

REACTIONS (6)
  - Generalised tonic-clonic seizure [None]
  - Fall [None]
  - Face injury [None]
  - Epistaxis [None]
  - Lip swelling [None]
  - Excoriation [None]
